FAERS Safety Report 13983983 (Version 1)
Quarter: 2017Q3

REPORT INFORMATION
  Report Type: Spontaneous
  Country: AR (occurrence: AR)
  Receive Date: 20170918
  Receipt Date: 20170918
  Transmission Date: 20171128
  Serious: Yes (Hospitalization)
  Sender: FDA-Public Use
  Company Number: AR-BIOMARINAP-AR-2017-115421

PATIENT
  Age: 2 Year
  Sex: Male
  Weight: 13.3 kg

DRUGS (1)
  1. ALDURAZYME [Suspect]
     Active Substance: LARONIDASE
     Indication: MUCOPOLYSACCHARIDOSIS I
     Dosage: 1500 UNITS, QW
     Route: 041
     Dates: start: 20150819

REACTIONS (2)
  - Purulent discharge [Recovering/Resolving]
  - Inguinal hernia [Recovering/Resolving]
